FAERS Safety Report 4446993-8 (Version None)
Quarter: 2004Q3

REPORT INFORMATION
  Report Type: 
  Country: None (occurrence: None)
  Receive Date: 20040812
  Receipt Date: 20040414
  Transmission Date: 20050211
  Serious: No
  Sender: FDA-Public Use
  Company Number: USA040464942

PATIENT
  Age: 84 Year
  Sex: Male

DRUGS (8)
  1. CIALIS [Suspect]
     Dosage: 10 MG/1 AS NEEDED
  2. HYTRIN [Concomitant]
  3. GLIPIZIDE [Concomitant]
  4. IBUPROFEN [Concomitant]
  5. METFORMIN HCL [Concomitant]
  6. ACIPHEX [Concomitant]
  7. ZYRTEC [Concomitant]
  8. CHILDREN'S ASPIRIN (ACETYLSALICYLIC ACID) [Concomitant]

REACTIONS (1)
  - DRUG INEFFECTIVE [None]
